FAERS Safety Report 7722631-3 (Version None)
Quarter: 2011Q3

REPORT INFORMATION
  Report Type: 
  Country: None (occurrence: None)
  Receive Date: 20110831
  Receipt Date: 20110825
  Transmission Date: 20111222
  Serious: Yes (Hospitalization, Disabling)
  Sender: FDA-Public Use
  Company Number: JP-MERCK-1106USA01879

PATIENT
  Age: 78 Year
  Sex: Male
  Weight: 68 kg

DRUGS (9)
  1. LEVOTHYROXINE SODIUM [Concomitant]
     Indication: HYPOTENSION
     Dosage: DIVIDED DOSE FREQUENCY UNKNOWN
     Route: 048
     Dates: start: 20021017, end: 20110703
  2. LEVOTHYROXINE SODIUM [Concomitant]
     Route: 048
     Dates: start: 20021226, end: 20110703
  3. ALLOPURINOL [Concomitant]
     Indication: HYPERURICAEMIA
     Dosage: DIVIDED DOSE FREQUENCY UNKNOWN
     Route: 048
     Dates: start: 20030731, end: 20110703
  4. LIVALO [Concomitant]
     Indication: HYPERLIPIDAEMIA
     Route: 048
     Dates: start: 20080820, end: 20110703
  5. JANUVIA [Suspect]
     Indication: DIABETES MELLITUS
     Route: 048
     Dates: start: 20110210, end: 20110608
  6. GLYBURIDE [Concomitant]
     Indication: DIABETES MELLITUS
     Dosage: DIVIDED DOSE FREQUENCY UNKNOWN
     Route: 048
     Dates: start: 20110209, end: 20110608
  7. COZAAR [Concomitant]
     Indication: HYPERTENSION
     Dosage: DIVIDED DOSE FREQUENCY UNKNOWN
     Route: 048
     Dates: start: 20100430, end: 20110608
  8. ATELEC [Concomitant]
     Indication: HYPERTENSION
     Dosage: DIVIDED DOSE FREQUENCY UNKNOWN
     Route: 048
     Dates: start: 20091104, end: 20110703
  9. SPIRIVA [Concomitant]
     Indication: CHRONIC OBSTRUCTIVE PULMONARY DISEASE
     Route: 055
     Dates: start: 20101022, end: 20110703

REACTIONS (8)
  - HAEMODIALYSIS [None]
  - RENAL FAILURE [None]
  - CARDIAC FAILURE [None]
  - BACK PAIN [None]
  - RENAL CYST [None]
  - RENAL ATROPHY [None]
  - LYMPHADENOPATHY MEDIASTINAL [None]
  - ARTERIOSCLEROSIS [None]
